FAERS Safety Report 26097717 (Version 4)
Quarter: 2025Q4

REPORT INFORMATION
  Report Type: Spontaneous
  Country: AU (occurrence: AU)
  Receive Date: 20251127
  Receipt Date: 20251224
  Transmission Date: 20260117
  Serious: Yes (Other)
  Sender: AMICUS THERAPEUTICS
  Company Number: AU-AMICUS THERAPEUTICS, INC.-AMI_4516

PATIENT
  Age: 63 Year
  Sex: Female

DRUGS (2)
  1. GALAFOLD [Suspect]
     Active Substance: MIGALASTAT HYDROCHLORIDE
     Indication: Fabry^s disease
     Dosage: UNK
     Route: 048
     Dates: start: 201708
  2. TACROLIMUS [Suspect]
     Active Substance: TACROLIMUS
     Indication: Renal transplant
     Dosage: UNK
     Route: 065

REACTIONS (16)
  - Renal impairment [Not Recovered/Not Resolved]
  - Dementia [Unknown]
  - Delirium [Unknown]
  - Cardiac dysfunction [Unknown]
  - Adrenal insufficiency [Not Recovered/Not Resolved]
  - Cardiac failure [Recovered/Resolved]
  - Hypogammaglobulinaemia [Not Recovered/Not Resolved]
  - Left ventricular hypertrophy [Not Recovered/Not Resolved]
  - Infection [Unknown]
  - Drug level fluctuating [Not Recovered/Not Resolved]
  - Organic brain syndrome [Not Recovered/Not Resolved]
  - White matter lesion [Unknown]
  - Condition aggravated [Unknown]
  - Disorientation [Not Recovered/Not Resolved]
  - Amnesia [Not Recovered/Not Resolved]
  - Diarrhoea [Not Recovered/Not Resolved]

NARRATIVE: CASE EVENT DATE: 20210101
